FAERS Safety Report 13055028 (Version 2)
Quarter: 2016Q4

REPORT INFORMATION
  Report Type: Spontaneous
  Country: CA (occurrence: CA)
  Receive Date: 20161222
  Receipt Date: 20161229
  Transmission Date: 20170207
  Serious: Yes (Hospitalization, Other)
  Sender: FDA-Public Use
  Company Number: CA-SUNOVION-2016SUN003157

PATIENT
  Age: 57 Year
  Sex: Male

DRUGS (2)
  1. LORAZEPAM. [Concomitant]
     Active Substance: LORAZEPAM
     Dosage: 2 MG, AS NECESSARY
  2. LATUDA [Suspect]
     Active Substance: LURASIDONE HYDROCHLORIDE
     Indication: BIPOLAR DISORDER
     Dosage: 20 MG, QD
     Route: 048

REACTIONS (8)
  - Cerebrovascular accident [Recovering/Resolving]
  - Back pain [Unknown]
  - Transient ischaemic attack [Recovering/Resolving]
  - Chest discomfort [Recovered/Resolved]
  - Dyspnoea [Recovering/Resolving]
  - Atrial fibrillation [Recovered/Resolved]
  - Pain in extremity [Unknown]
  - Hemiparesis [Recovering/Resolving]

NARRATIVE: CASE EVENT DATE: 201612
